FAERS Safety Report 6582286-0 (Version None)
Quarter: 2010Q1

REPORT INFORMATION
  Report Type: 
  Country: None (occurrence: None)
  Receive Date: 20100212
  Receipt Date: 20100212
  Transmission Date: 20100710
  Serious: Yes (Death, Hospitalization)
  Sender: FDA-Public Use
  Company Number: None

PATIENT
  Sex: Female
  Weight: 81.2 kg

DRUGS (2)
  1. CARBOPLATIN [Suspect]
     Dosage: 520 MG
     Dates: end: 20080617
  2. TAXOL [Suspect]
     Dosage: 330 MG
     Dates: end: 20080617

REACTIONS (12)
  - ANURIA [None]
  - CARDIO-RESPIRATORY ARREST [None]
  - DIABETES MELLITUS [None]
  - DYSPNOEA [None]
  - EMBOLISM [None]
  - HYPOGLYCAEMIA [None]
  - NAUSEA [None]
  - POST PROCEDURAL COMPLICATION [None]
  - PULMONARY EMBOLISM [None]
  - PULMONARY HYPERTENSION [None]
  - TUMOUR LYSIS SYNDROME [None]
  - VOMITING [None]
